FAERS Safety Report 11987520 (Version 1)
Quarter: 2016Q1

REPORT INFORMATION
  Report Type: Spontaneous
  Country: US (occurrence: US)
  Receive Date: 20160202
  Receipt Date: 20160202
  Transmission Date: 20160526
  Serious: Yes (Other)
  Sender: FDA-Public Use
  Company Number: US-PFIZER INC-2015315183

PATIENT
  Age: 72 Year
  Sex: Female
  Weight: 90.7 kg

DRUGS (4)
  1. LEVOXYL [Suspect]
     Active Substance: LEVOTHYROXINE SODIUM
     Indication: THYROID DISORDER
     Dosage: 88 UG, 1X/DAY (ONCE IN THE MIDDLE OF NIGHT ON AN EMPTY STOMACH)
     Route: 048
  2. HYDROCODONE [Concomitant]
     Active Substance: HYDROCODONE
     Indication: ARTHRALGIA
     Dosage: AS NEEDED (5/325MG 1-2 EVERY 4 HOURS)
  3. IBUPROFEN. [Concomitant]
     Active Substance: IBUPROFEN
     Indication: ARTHRALGIA
     Dosage: 400 MG, AS NEEDED (EVERY 8 HOURS)
  4. ACETAMINOPHEN. [Concomitant]
     Active Substance: ACETAMINOPHEN
     Dosage: TAKEN NOT VERY OFTEN

REACTIONS (3)
  - Lower respiratory tract infection [Unknown]
  - Breast cancer [Recovered/Resolved]
  - Arthritis [Unknown]
